FAERS Safety Report 9449048 (Version 2)
Quarter: 2013Q3

REPORT INFORMATION
  Report Type: Report from Study
  Country: FR (occurrence: FR)
  Receive Date: 20130808
  Receipt Date: 20130917
  Transmission Date: 20140515
  Serious: Yes (Other)
  Sender: FDA-Public Use
  Company Number: FR-AMGEN-FRACT2013007760

PATIENT
  Age: 36 Year
  Sex: Female
  Weight: 61.4 kg

DRUGS (1)
  1. DENOSUMAB [Suspect]
     Indication: PRODUCT USED FOR UNKNOWN INDICATION
     Dosage: 120 MG, Q4WK
     Dates: start: 20110929

REACTIONS (2)
  - Cytomegalovirus infection [Not Recovered/Not Resolved]
  - Exposure via father [Unknown]
